FAERS Safety Report 5620047-7 (Version None)
Quarter: 2008Q1

REPORT INFORMATION
  Report Type: 
  Country: None (occurrence: None)
  Receive Date: 20080208
  Receipt Date: 20080205
  Transmission Date: 20080703
  Serious: Yes (Death)
  Sender: FDA-Public Use
  Company Number: CA-JNJFOC-20080201169

PATIENT
  Age: 87 Year
  Sex: Male

DRUGS (3)
  1. RISPERDAL [Suspect]
     Indication: ABNORMAL BEHAVIOUR
  2. RISPERDAL [Suspect]
     Indication: MANIA
  3. OTHER MEDICATIONS [Concomitant]

REACTIONS (2)
  - CEREBRAL DISORDER [None]
  - SPEECH DISORDER [None]
